FAERS Safety Report 17984485 (Version 1)
Quarter: 2020Q3

REPORT INFORMATION
  Report Type: Spontaneous
  Country: US (occurrence: US)
  Receive Date: 20200706
  Receipt Date: 20200706
  Transmission Date: 20201103
  Serious: Yes (Other)
  Sender: FDA-Public Use
  Company Number: US-ELI_LILLY_AND_COMPANY-US202006010875

PATIENT
  Age: 73 Year
  Sex: Male

DRUGS (8)
  1. HUMALOG [Suspect]
     Active Substance: INSULIN LISPRO
     Indication: PRODUCT USED FOR UNKNOWN INDICATION
     Dosage: UNK UNK, UNKNOWN (20 TO 30 UNITS ON A SLIDING SCALE)
     Route: 065
     Dates: start: 2010
  2. LANTUS [Suspect]
     Active Substance: INSULIN GLARGINE
     Indication: DIABETES MELLITUS
     Dosage: UNK UNK, UNKNOWN
     Route: 065
  3. HUMALOG [Suspect]
     Active Substance: INSULIN LISPRO
     Dosage: UNK UNK, UNKNOWN (20 TO 30 UNITS ON A SLIDING SCALE)
     Route: 065
     Dates: start: 2010
  4. HUMALOG [Suspect]
     Active Substance: INSULIN LISPRO
     Dosage: UNK UNK, UNKNOWN (20 TO 30 UNITS ON A SLIDING SCALE)
     Route: 065
     Dates: start: 2010
  5. HUMALOG [Suspect]
     Active Substance: INSULIN LISPRO
     Dosage: UNK UNK, UNKNOWN (20 TO 30 UNITS ON A SLIDING SCALE)
     Route: 065
     Dates: start: 2010
  6. HUMALOG [Suspect]
     Active Substance: INSULIN LISPRO
     Indication: PRODUCT USED FOR UNKNOWN INDICATION
     Dosage: UNK UNK, UNKNOWN (20 TO 30 UNITS ON A SLIDING SCALE)
     Route: 065
     Dates: start: 2010
  7. HUMALOG [Suspect]
     Active Substance: INSULIN LISPRO
     Dosage: UNK UNK, UNKNOWN (20 TO 30 UNITS ON A SLIDING SCALE)
     Route: 065
     Dates: start: 2010
  8. HUMALOG [Suspect]
     Active Substance: INSULIN LISPRO
     Indication: PRODUCT USED FOR UNKNOWN INDICATION
     Dosage: UNK UNK, UNKNOWN (20 TO 30 UNITS ON A SLIDING SCALE)
     Route: 065
     Dates: start: 2010

REACTIONS (5)
  - Arthritis [Recovering/Resolving]
  - Coronary artery disease [Recovering/Resolving]
  - Blood glucose decreased [Recovering/Resolving]
  - Accidental underdose [Unknown]
  - Urinary tract infection [Recovering/Resolving]

NARRATIVE: CASE EVENT DATE: 201706
